FAERS Safety Report 7701939-1 (Version None)
Quarter: 2011Q3

REPORT INFORMATION
  Report Type: 
  Country: None (occurrence: None)
  Receive Date: 20110822
  Receipt Date: 20110811
  Transmission Date: 20111222
  Serious: Yes (Other)
  Sender: FDA-Public Use
  Company Number: CA-JNJFOC-20110808084

PATIENT

DRUGS (2)
  1. SIMPONI [Suspect]
     Indication: MATERNAL EXPOSURE DURING PREGNANCY
     Route: 064
     Dates: start: 20100401
  2. SIMPONI [Suspect]
     Route: 064
     Dates: start: 20100809

REACTIONS (1)
  - PHENYLKETONURIA [None]
